FAERS Safety Report 8290807-5 (Version None)
Quarter: 2012Q2

REPORT INFORMATION
  Report Type: 
  Country: None (occurrence: None)
  Receive Date: 20120417
  Receipt Date: 20120409
  Transmission Date: 20120825
  Serious: Yes (Other)
  Sender: FDA-Public Use
  Company Number: US-FRI-1000029665

PATIENT
  Age: 56 Year
  Sex: Female

DRUGS (13)
  1. AMLODIPINE [Concomitant]
     Indication: HYPERTENSION
     Dosage: 10/20 MG
  2. NAPROXEN (ALEVE) [Concomitant]
  3. VALACYCLOVIR [Concomitant]
     Indication: HERPES VIRUS INFECTION
     Dosage: 500 MG
  4. SAVELLA [Suspect]
     Dosage: 12.5 MG BID
     Dates: start: 20110803, end: 20110804
  5. SAVELLA [Suspect]
     Dosage: 100 MG QD
     Dates: end: 20120101
  6. MIRTAZAPINE [Concomitant]
  7. SAVELLA [Suspect]
     Dosage: 25 MG BID
     Dates: start: 20110805, end: 20110808
  8. SAVELLA [Suspect]
     Indication: FIBROMYALGIA
     Dosage: 12.5 MG
     Dates: start: 20110802, end: 20110802
  9. GABAPENTIN [Concomitant]
     Indication: FIBROMYALGIA
     Dosage: 300 MG
  10. SAVELLA [Suspect]
     Dosage: 50 MG BID
     Dates: start: 20110809
  11. AMBIEN [Concomitant]
     Indication: INSOMNIA
  12. SAVELLA [Suspect]
     Dosage: 100 MG BID
     Dates: start: 20120101
  13. GABAPENTIN [Concomitant]
     Indication: NEURALGIA

REACTIONS (4)
  - VITAMIN D DECREASED [None]
  - URINARY TRACT INFECTION [None]
  - ONYCHOMYCOSIS [None]
  - CANDIDIASIS [None]
